FAERS Safety Report 6617995-8 (Version None)
Quarter: 2010Q1

REPORT INFORMATION
  Report Type: 
  Country: None (occurrence: None)
  Receive Date: 20100223
  Receipt Date: 20100112
  Transmission Date: 20100710
  Serious: Yes (Hospitalization)
  Sender: FDA-Public Use
  Company Number: 8052623

PATIENT
  Sex: Female
  Weight: 136.1 kg

DRUGS (22)
  1. CERTOLIZUMAB PEGOL [Suspect]
     Indication: RHEUMATOID ARTHRITIS
     Dosage: (400 MG, ONCE MONTHLY SUBCUTANEOUS); SEE IMAGE
     Route: 058
     Dates: start: 20030716
  2. METHOTREXATE [Concomitant]
  3. XYLOCAINE [Concomitant]
  4. TYLENOL (CAPLET) [Concomitant]
  5. FOSAMAX [Concomitant]
  6. BEXTRA [Concomitant]
  7. MOBIC [Concomitant]
  8. PREDNISONE [Concomitant]
  9. FOLIC ACID [Concomitant]
  10. ASPIRIN [Concomitant]
  11. CALCIUM W/MAGNESIUM [Concomitant]
  12. FLUOGEN [Concomitant]
  13. HYDROCODONE [Concomitant]
  14. HYDROCODONE COMPOUND [Concomitant]
  15. LYRICA [Concomitant]
  16. FLUZONE [Concomitant]
  17. LOVENOX [Concomitant]
  18. COUMADIN [Concomitant]
  19. TAMIFLU [Concomitant]
  20. FUROSEMIDE [Concomitant]
  21. KEFLEX [Concomitant]
  22. POTASSIUM [Concomitant]

REACTIONS (1)
  - VIRAL INFECTION [None]
